FAERS Safety Report 18999339 (Version 1)
Quarter: 2021Q1

REPORT INFORMATION
  Report Type: Spontaneous
  Country: US (occurrence: US)
  Receive Date: 20210312
  Receipt Date: 20210312
  Transmission Date: 20210420
  Serious: No
  Sender: FDA-Public Use
  Company Number: US-SA-2021SA081935

PATIENT
  Sex: Male

DRUGS (10)
  1. DUPIXENT [Suspect]
     Active Substance: DUPILUMAB
     Indication: DERMATITIS ATOPIC
     Dosage: INJECTION
     Route: 058
     Dates: start: 20191113
  2. ASPIRIN. [Concomitant]
     Active Substance: ASPIRIN
  3. AZATHIOPRINE. [Concomitant]
     Active Substance: AZATHIOPRINE
  4. EUCRISA [Concomitant]
     Active Substance: CRISABOROLE
  5. CARBAMAZEPIN [Concomitant]
     Active Substance: CARBAMAZEPINE
  6. CLOBETASOL [Concomitant]
     Active Substance: CLOBETASOL
  7. ATORVASTATIN [Concomitant]
     Active Substance: ATORVASTATIN
  8. FISH OIL [Concomitant]
     Active Substance: FISH OIL
  9. PREDNISONE. [Concomitant]
     Active Substance: PREDNISONE
  10. MAGNESIUM OXIDE. [Concomitant]
     Active Substance: MAGNESIUM OXIDE

REACTIONS (1)
  - Depression [Not Recovered/Not Resolved]
